FAERS Safety Report 4286674-7 (Version None)
Quarter: 2004Q1

REPORT INFORMATION
  Report Type: 
  Country: None (occurrence: None)
  Receive Date: 20040204
  Receipt Date: 20040126
  Transmission Date: 20041129
  Serious: Yes (Other)
  Sender: FDA-Public Use
  Company Number: GBWYE487631DEC03

PATIENT
  Sex: Female

DRUGS (2)
  1. EFFEXOR XR [Suspect]
     Indication: DEPRESSION
     Dosage: TITRATED UP TO 300MG (FREQUENCY UNSPECIFIED) OVER 4 WEEKS
     Route: 048
     Dates: start: 20031103, end: 20031208
  2. FLUOXETINE HCL [Concomitant]

REACTIONS (5)
  - DRUG INTOLERANCE [None]
  - DRUG WITHDRAWAL SYNDROME [None]
  - HEADACHE [None]
  - HYPERTENSION [None]
  - PALPITATIONS [None]
